FAERS Safety Report 8172830 (Version 2)
Quarter: 2013Q2

REPORT INFORMATION
  Report Type: Spontaneous
  Country: US (occurrence: US)
  Receive Date: 20111007
  Receipt Date: 20130502
  Transmission Date: 20140414
  Serious: Yes (Other)
  Sender: FDA-Public Use
  Company Number: US-TEVA-303635USA

PATIENT
  Age: 71 Year
  Sex: Female

DRUGS (8)
  1. ANASTROZOLE [Suspect]
     Dosage: 1 MILLIGRAM DAILY;
     Dates: start: 20110214, end: 201108
  2. ALENDRONATE SODIUM [Concomitant]
  3. CALCIUM [Concomitant]
  4. SERTRALINE [Concomitant]
     Dates: start: 2000
  5. ALPRAZOLAM [Concomitant]
     Indication: SLEEP DISORDER
     Dates: start: 2000
  6. ACETYLSALICYLIC ACID [Concomitant]
  7. CANNABIS SATIVA (HEMP HEARTS) [Concomitant]
     Indication: WEIGHT DECREASED
  8. ANTIINFLAMMATORY/ANTIRHEUMATIC PRODUCTS [Concomitant]

REACTIONS (43)
  - Cerebrovascular disorder [Recovering/Resolving]
  - Cardiac disorder [Recovering/Resolving]
  - Deafness [Recovering/Resolving]
  - Memory impairment [Recovering/Resolving]
  - Feeling abnormal [Recovering/Resolving]
  - Impaired driving ability [Recovering/Resolving]
  - Mental impairment [Recovering/Resolving]
  - Balance disorder [Recovering/Resolving]
  - Vasodilatation [Recovering/Resolving]
  - Sneezing [Recovering/Resolving]
  - Dysgraphia [Recovering/Resolving]
  - Gait disturbance [Recovering/Resolving]
  - Hallucination, auditory [Recovering/Resolving]
  - Abdominal distension [Recovering/Resolving]
  - Fall [Recovering/Resolving]
  - Cough [Recovering/Resolving]
  - Rash [Recovering/Resolving]
  - Swelling [Recovering/Resolving]
  - Anger [Recovering/Resolving]
  - Feeling abnormal [Recovering/Resolving]
  - Mood swings [Recovering/Resolving]
  - Arthralgia [Recovering/Resolving]
  - Weight increased [Recovering/Resolving]
  - Depression [Recovered/Resolved]
  - Feeling of despair [Recovered/Resolved]
  - Frustration [Recovered/Resolved]
  - Head banging [Recovered/Resolved]
  - Meniscus injury [Recovered/Resolved]
  - Aphasia [Recovered/Resolved]
  - Emotional disorder [Recovered/Resolved]
  - Joint swelling [Recovered/Resolved]
  - Bone disorder [Recovered/Resolved]
  - Fatigue [Recovered/Resolved]
  - Tension [Recovered/Resolved]
  - Fear [Recovered/Resolved]
  - Hearing impaired [Recovered/Resolved]
  - Stress [Recovered/Resolved]
  - Tinnitus [Recovered/Resolved]
  - Dysgeusia [Recovered/Resolved]
  - Abdominal pain [Recovered/Resolved]
  - Asthenia [Recovered/Resolved]
  - Bite [Recovered/Resolved]
  - Anxiety [Recovered/Resolved]
